FAERS Safety Report 8318845-4 (Version None)
Quarter: 2012Q2

REPORT INFORMATION
  Report Type: 
  Country: None (occurrence: None)
  Receive Date: 20120427
  Receipt Date: 20120417
  Transmission Date: 20120825
  Serious: Yes (Hospitalization, Other)
  Sender: FDA-Public Use
  Company Number: AR-AMGEN-ARGSP2011053293

PATIENT
  Age: 69 Year
  Sex: Female
  Weight: 62 kg

DRUGS (4)
  1. DELTISONA B                        /00049601/ [Concomitant]
     Dosage: UNK
  2. LOTOQUIS SIMPLE                    /00017402/ [Concomitant]
     Dosage: UNK
  3. ENBREL [Suspect]
     Indication: RHEUMATOID ARTHRITIS
     Dosage: 25 MG, 2X/WEEK
     Route: 058
     Dates: start: 20060728, end: 20110701
  4. LOGICAL                            /00228505/ [Concomitant]
     Dosage: UNK

REACTIONS (3)
  - FALL [None]
  - HIP FRACTURE [None]
  - DEVICE RELATED INFECTION [None]
